FAERS Safety Report 18966604 (Version 2)
Quarter: 2023Q2

REPORT INFORMATION
  Report Type: Spontaneous
  Country: RU (occurrence: None)
  Receive Date: 20210304
  Receipt Date: 20230529
  Transmission Date: 20230722
  Serious: Yes (Life-Threatening, Other)
  Sender: FDA-Public Use
  Company Number: RU-ROCHE-2774808

PATIENT
  Age: 36 Year
  Sex: Female

DRUGS (15)
  1. HERCEPTIN [Suspect]
     Active Substance: TRASTUZUMAB
     Indication: Breast cancer
     Dosage: ON DAY 1
     Route: 065
     Dates: start: 201701
  2. HERCEPTIN [Suspect]
     Active Substance: TRASTUZUMAB
     Dosage: 12 ADMINISTRATIONS OF TRASTUZUMAB
     Route: 065
     Dates: start: 201708
  3. DOCETAXEL [Suspect]
     Active Substance: DOCETAXEL
     Indication: Breast cancer
     Dosage: ON DAY 1
     Route: 042
     Dates: start: 201701
  4. DOCETAXEL [Suspect]
     Active Substance: DOCETAXEL
     Route: 042
  5. CYCLOPHOSPHAMIDE [Suspect]
     Active Substance: CYCLOPHOSPHAMIDE
     Indication: Breast cancer
     Dosage: 4 CYCLES
     Route: 065
     Dates: start: 20170201
  6. DOXORUBICIN [Suspect]
     Active Substance: DOXORUBICIN
     Indication: Breast cancer
     Dosage: 4 CYCLES
     Route: 065
     Dates: start: 20170201
  7. INVESTIGATIONAL BIOSIMILARS [Suspect]
     Active Substance: INVESTIGATIONAL BIOSIMILARS
     Indication: Breast cancer
     Route: 065
     Dates: start: 201708
  8. PACLITAXEL [Suspect]
     Active Substance: PACLITAXEL
     Indication: Breast cancer
     Route: 065
  9. KADCYLA [Suspect]
     Active Substance: ADO-TRASTUZUMAB EMTANSINE
     Indication: Breast cancer
     Dosage: 44 ADMINISTRATIONS OF TRASTUZUMAB EMTANSINE LYOPHILISATE 234 TO 252 MG WERE PERFORMED
     Route: 065
     Dates: start: 20200811, end: 20230504
  10. KADCYLA [Suspect]
     Active Substance: ADO-TRASTUZUMAB EMTANSINE
     Dosage: SECOND ADMINISTRATION
     Route: 065
     Dates: start: 20200901
  11. KADCYLA [Suspect]
     Active Substance: ADO-TRASTUZUMAB EMTANSINE
     Dosage: THIRD ADMINISTRATION
     Route: 065
     Dates: start: 20200922
  12. KADCYLA [Suspect]
     Active Substance: ADO-TRASTUZUMAB EMTANSINE
     Dosage: FOURTH ADMINISTRATION
     Route: 065
     Dates: start: 20201014
  13. KADCYLA [Suspect]
     Active Substance: ADO-TRASTUZUMAB EMTANSINE
     Dosage: FIFTH ADMINISTRATION
     Route: 065
     Dates: start: 20201103
  14. KADCYLA [Suspect]
     Active Substance: ADO-TRASTUZUMAB EMTANSINE
     Dosage: SIXTH ADMINISTRATION
     Route: 065
     Dates: start: 20201124
  15. KADCYLA [Suspect]
     Active Substance: ADO-TRASTUZUMAB EMTANSINE
     Dosage: SEVENTH ADMINISTRATION
     Route: 065
     Dates: start: 20201215

REACTIONS (13)
  - Metastases to liver [Unknown]
  - Respiratory distress [Unknown]
  - Rash papular [Unknown]
  - Back pain [Unknown]
  - Epistaxis [Unknown]
  - Chills [Unknown]
  - Ill-defined disorder [Unknown]
  - Rash [Unknown]
  - Disease progression [Unknown]
  - Metastases to pleura [Unknown]
  - Hydrothorax [Unknown]
  - Breast cancer recurrent [Unknown]
  - Dyspnoea [Unknown]

NARRATIVE: CASE EVENT DATE: 20170115
